FAERS Safety Report 14022667 (Version 2)
Quarter: 2017Q4

REPORT INFORMATION
  Report Type: Spontaneous
  Country: JP (occurrence: JP)
  Receive Date: 20170929
  Receipt Date: 20171005
  Transmission Date: 20180321
  Serious: Yes (Life-Threatening, Hospitalization, Other)
  Sender: FDA-Public Use
  Company Number: JP-PFIZER INC-2016SE96397

PATIENT
  Age: 3 Year
  Sex: Female
  Weight: 14 kg

DRUGS (14)
  1. MEROPEN [Suspect]
     Active Substance: MEROPENEM
     Indication: PYREXIA
     Dosage: 500 MG, 3X/DAY
     Route: 041
     Dates: start: 20160604, end: 20160608
  2. CUBICIN [Suspect]
     Active Substance: DAPTOMYCIN
     Indication: PYREXIA
     Dosage: 80 MG, 1X/DAY
     Route: 041
     Dates: start: 20160606, end: 20160608
  3. CANCIDAS [Suspect]
     Active Substance: CASPOFUNGIN ACETATE
     Indication: FUNGAL INFECTION
     Dosage: 40 MG, 1X/DAY
     Route: 041
     Dates: start: 20160606, end: 20160606
  4. BAKTAR [Concomitant]
     Active Substance: SULFAMETHOXAZOLE\TRIMETHOPRIM
     Dosage: UNK
     Dates: start: 20150909, end: 20160608
  5. BFLUID [Concomitant]
     Active Substance: AMINO ACIDS\DEXTROSE\ELECTROLYTES NOS\VITAMINS
     Dosage: UNK
     Dates: start: 20160604, end: 20160606
  6. ACELIO [Concomitant]
     Active Substance: ACETAMINOPHEN
     Dosage: UNK
     Dates: start: 20160605, end: 20160606
  7. CANCIDAS [Suspect]
     Active Substance: CASPOFUNGIN ACETATE
     Indication: PYREXIA
     Dosage: 30 MG, 1X/DAY
     Route: 041
     Dates: start: 20160607, end: 20160607
  8. HYDROCORTONE /00028601/ [Concomitant]
     Active Substance: HYDROCORTISONE
     Dosage: UNK
     Dates: end: 201606
  9. FLUCONAZOLE. [Concomitant]
     Active Substance: FLUCONAZOLE
     Dosage: UNK
     Route: 048
     Dates: start: 20150909, end: 20160608
  10. FENTANYL. [Concomitant]
     Active Substance: FENTANYL
     Indication: PAIN
     Dosage: UNK
     Dates: start: 20160607, end: 20160613
  11. MEROPEN [Suspect]
     Active Substance: MEROPENEM
     Indication: DEVICE RELATED INFECTION
  12. METHOTREXATE. [Suspect]
     Active Substance: METHOTREXATE
     Indication: ACUTE LYMPHOCYTIC LEUKAEMIA
     Dosage: 290 MG, 1X/DAY
     Route: 041
     Dates: start: 20160601, end: 20160601
  13. METHOTREXATE. [Suspect]
     Active Substance: METHOTREXATE
     Dosage: 12.5 MG, 1X/DAY
     Route: 028
     Dates: start: 20160601, end: 20160601
  14. FULCALIQ [Concomitant]
     Active Substance: AMINO ACIDS\CARBOHYDRATES\ELECTROLYTES NOS\VITAMINS
     Dosage: UNK
     Dates: start: 20160606, end: 20160614

REACTIONS (5)
  - Hypogammaglobulinaemia [Recovered/Resolved]
  - Febrile neutropenia [Recovered/Resolved]
  - Thrombocytopenia [Recovered/Resolved]
  - Stevens-Johnson syndrome [Recovered/Resolved]
  - Anaemia [Unknown]

NARRATIVE: CASE EVENT DATE: 2016
